FAERS Safety Report 4967425-7 (Version None)
Quarter: 2006Q2

REPORT INFORMATION
  Report Type: 
  Country: None (occurrence: None)
  Receive Date: 20060407
  Receipt Date: 20060407
  Transmission Date: 20061013
  Serious: No
  Sender: FDA-Public Use
  Company Number: None

PATIENT
  Age: 47 Year
  Sex: Female
  Weight: 77.1115 kg

DRUGS (1)
  1. LEVAQUIN [Suspect]
     Indication: BRONCHITIS ACUTE
     Dosage: 500MG    1X DAILY   PO
     Route: 048
     Dates: start: 20060310, end: 20060326

REACTIONS (2)
  - DIFFICULTY IN WALKING [None]
  - JOINT STIFFNESS [None]
